FAERS Safety Report 7763741-4 (Version None)
Quarter: 2011Q3

REPORT INFORMATION
  Report Type: 
  Country: None (occurrence: None)
  Receive Date: 20110921
  Receipt Date: 20100208
  Transmission Date: 20111222
  Serious: Yes (Hospitalization)
  Sender: FDA-Public Use
  Company Number: DE-RANBAXY-2010US-46284

PATIENT

DRUGS (6)
  1. ACICLOVIR RPG 5% CREME [Suspect]
     Indication: ORAL HERPES
     Dosage: 4 DOSAGE FORM
     Route: 003
     Dates: start: 20091029, end: 20091109
  2. AMOXICILLIN [Suspect]
     Dosage: 6 GM UNK
     Route: 048
     Dates: start: 20091103, end: 20091105
  3. LOVENOX [Suspect]
     Indication: THROMBOSIS PROPHYLAXIS
     Dosage: 4000.000000 IU, UNK
     Route: 058
     Dates: start: 20091021, end: 20091117
  4. IMOVANE [Suspect]
     Indication: INSOMNIA
     Dosage: 3.75 MG  UNK
     Route: 048
     Dates: start: 20091102, end: 20091109
  5. AMOXICILLIN [Suspect]
     Indication: MENINGITIS
     Dosage: 14 GM UNK
     Route: 042
     Dates: start: 20091021, end: 20091102
  6. PANTOPRAZOLE SODIUM [Suspect]
     Indication: PRODUCT USED FOR UNKNOWN INDICATION
     Dosage: 20 MG DAILY
     Route: 048
     Dates: start: 20091021, end: 20091112

REACTIONS (3)
  - URTICARIA [None]
  - LYMPHOPENIA [None]
  - LEUKOPENIA [None]
